FAERS Safety Report 6203071-5 (Version None)
Quarter: 2009Q2

REPORT INFORMATION
  Report Type: 
  Country: None (occurrence: None)
  Receive Date: 20090527
  Receipt Date: 20090519
  Transmission Date: 20091009
  Serious: Yes (Death, Other)
  Sender: FDA-Public Use
  Company Number: US-ELI_LILLY_AND_COMPANY-US200811006075

PATIENT
  Sex: Male
  Weight: 138.78 kg

DRUGS (1)
  1. BYETTA [Suspect]
     Indication: TYPE 2 DIABETES MELLITUS
     Dosage: 5 UG, 2/D
     Dates: start: 20060503, end: 20081001

REACTIONS (5)
  - ADENOCARCINOMA PANCREAS [None]
  - COMA HEPATIC [None]
  - HEPATIC FAILURE [None]
  - METASTASES TO LIVER [None]
  - METASTASES TO LUNG [None]
